FAERS Safety Report 5568850-6 (Version None)
Quarter: 2007Q4

REPORT INFORMATION
  Report Type: 
  Country: None (occurrence: None)
  Receive Date: 20071220
  Receipt Date: 20070312
  Transmission Date: 20080405
  Serious: No
  Sender: FDA-Public Use
  Company Number: A0639050A

PATIENT
  Age: 62 Year
  Sex: Male
  Weight: 86.8 kg

DRUGS (6)
  1. AVODART [Suspect]
     Indication: BENIGN PROSTATIC HYPERPLASIA
     Dosage: .5MG PER DAY
     Route: 048
     Dates: start: 20070203
  2. LOPRESSOR [Concomitant]
     Indication: HYPERTENSION
     Dosage: 25MG TWICE PER DAY
     Route: 048
     Dates: start: 20020701
  3. LISINOPRIL [Concomitant]
     Indication: HYPERTENSION
     Dosage: 5MG PER DAY
     Route: 048
     Dates: start: 20020701
  4. NORVASC [Concomitant]
     Indication: HYPERTENSION
     Dosage: 2.5MG PER DAY
     Route: 048
     Dates: start: 20020701
  5. LIPITOR [Concomitant]
     Dosage: 20MG AT NIGHT
     Route: 048
     Dates: start: 19981201
  6. ZETIA [Concomitant]
     Dosage: 10MG AT NIGHT
     Route: 048
     Dates: start: 20040701

REACTIONS (1)
  - CHROMATURIA [None]
